FAERS Safety Report 21590698 (Version 1)
Quarter: 2022Q4

REPORT INFORMATION
  Report Type: Spontaneous
  Country: US (occurrence: US)
  Receive Date: 20221114
  Receipt Date: 20221114
  Transmission Date: 20230112
  Serious: No
  Sender: FDA-Public Use
  Company Number: US-TARO PHARMACEUTICALS USA INC.-2022TAR00349

PATIENT

DRUGS (1)
  1. MUPIROCIN [Suspect]
     Active Substance: MUPIROCIN
     Indication: Infection
     Dosage: ONCE, ONLY APPLIED ONCE BY HCP
     Route: 061
     Dates: start: 202110, end: 202110

REACTIONS (1)
  - Dry skin [Not Recovered/Not Resolved]
